FAERS Safety Report 4920151-2 (Version None)
Quarter: 2006Q1

REPORT INFORMATION
  Report Type: 
  Country: None (occurrence: None)
  Receive Date: 20060216
  Receipt Date: 20041004
  Transmission Date: 20060701
  Serious: Yes (Hospitalization)
  Sender: FDA-Public Use
  Company Number: ACO_0007_2004

PATIENT
  Age: 74 Year
  Sex: Female

DRUGS (1)
  1. SIRDALUD [Suspect]
     Indication: MULTIPLE SCLEROSIS
     Dosage: 2 MG QDAY, PO
     Route: 048
     Dates: start: 20040901, end: 20040917

REACTIONS (1)
  - MYOCARDIAL INFARCTION [None]
